FAERS Safety Report 7935850-8 (Version None)
Quarter: 2011Q4

REPORT INFORMATION
  Report Type: 
  Country: None (occurrence: None)
  Receive Date: 20111123
  Receipt Date: 20111116
  Transmission Date: 20120403
  Serious: Yes (Hospitalization)
  Sender: FDA-Public Use
  Company Number: PHHY2011FR100730

PATIENT
  Sex: Female

DRUGS (12)
  1. REVLIMID [Concomitant]
     Dosage: ) 25 MG DAILY FOR 21 DAYS
     Dates: start: 20100301, end: 20110301
  2. ZOMETA [Suspect]
     Dosage: 4 MG EVERY 28 DAYS
     Dates: start: 20080101, end: 20080601
  3. ZOMETA [Suspect]
     Dosage: 4 MG EVERY 28 DAYS
     Route: 042
     Dates: start: 20110301, end: 20110501
  4. DEXAMETHASONE [Concomitant]
     Dosage: 20 MG, DAILY
     Route: 048
  5. AREDIA [Suspect]
     Dosage: 90 MG, MONTHLY
     Route: 042
     Dates: start: 20080101, end: 20100401
  6. ZOMETA [Suspect]
     Dosage: 4 MG EVERY 28 DAYS
     Dates: start: 20100401, end: 20101101
  7. VELCADE [Concomitant]
     Dosage: UNK
     Dates: start: 20110501
  8. AREDIA [Suspect]
     Indication: METASTASES TO BONE
     Dosage: 90 MG, MONTHLY
     Route: 042
     Dates: start: 20060201, end: 20070101
  9. ASPIRIN [Concomitant]
     Dosage: 75 MG, QD
     Route: 048
     Dates: start: 20080101
  10. THALIDOMIDE [Concomitant]
     Dosage: 200 MG, DAILY
     Dates: start: 20080101, end: 20080601
  11. REVLIMID [Concomitant]
     Dosage: 15 MG DAILY
     Route: 048
     Dates: start: 20100301, end: 20110501
  12. ZOMETA [Suspect]
     Indication: OSTEOPOROSIS
     Dosage: 4 MG EVERY 28 DAYS
     Route: 042
     Dates: start: 20070101, end: 20070701

REACTIONS (5)
  - BLOOD CREATININE INCREASED [None]
  - OSTEITIS [None]
  - BONE DISORDER [None]
  - OSTEONECROSIS OF JAW [None]
  - BLOOD CALCIUM INCREASED [None]
